FAERS Safety Report 23101541 (Version 3)
Quarter: 2023Q4

REPORT INFORMATION
  Report Type: Report from Study
  Country: CO (occurrence: CO)
  Receive Date: 20231025
  Receipt Date: 20231208
  Transmission Date: 20240110
  Serious: Yes (Death, Life-Threatening, Hospitalization, Other)
  Sender: FDA-Public Use
  Company Number: CO-ABBVIE-5462712

PATIENT
  Sex: Female

DRUGS (1)
  1. ZEMPLAR [Suspect]
     Active Substance: PARICALCITOL
     Indication: Chronic kidney disease
     Dosage: FORM STRENGTH: 5 MICROGRAM
     Route: 042
     Dates: start: 20220908, end: 20221112

REACTIONS (15)
  - Coma [Recovering/Resolving]
  - Speech disorder [Recovering/Resolving]
  - Pulmonary oedema [Recovering/Resolving]
  - Oxygen therapy [Recovering/Resolving]
  - Dialysis induced hypertension [Recovering/Resolving]
  - Lung disorder [Recovering/Resolving]
  - Back pain [Recovering/Resolving]
  - Pain in extremity [Recovering/Resolving]
  - Cardiac arrest [Recovering/Resolving]
  - Mobility decreased [Unknown]
  - Blister [Unknown]
  - Wound [Unknown]
  - Cardio-respiratory arrest [Not Recovered/Not Resolved]
  - Cardio-respiratory arrest [Fatal]
  - Decreased appetite [Unknown]

NARRATIVE: CASE EVENT DATE: 20230101
